FAERS Safety Report 12890862 (Version 1)
Quarter: 2016Q4

REPORT INFORMATION
  Report Type: Report from Study
  Country: ES (occurrence: ES)
  Receive Date: 20161027
  Receipt Date: 20161027
  Transmission Date: 20170207
  Serious: Yes (Other)
  Sender: FDA-Public Use
  Company Number: ES-GILEAD-2016-0239545

PATIENT
  Age: 52 Year
  Sex: Male
  Weight: 72 kg

DRUGS (12)
  1. SPIRONOLACTONA [Concomitant]
     Dosage: 200 MG, 1 VEZ AL DIA
     Dates: start: 20150408
  2. FUROSEMID                          /00032601/ [Concomitant]
     Active Substance: FUROSEMIDE
     Dosage: 80 MG, 1 VEZ AL DIA
     Route: 048
     Dates: start: 20150408
  3. NORFLOXACINO [Concomitant]
     Active Substance: NORFLOXACIN
     Dosage: 400 MG, 1 VEZ AL DIA
     Route: 048
     Dates: start: 20150408
  4. CLEXANE DUO [Concomitant]
     Dosage: 80 MG, 1 VEZ AL DIA
     Route: 048
     Dates: start: 20150408
  5. FOLIC ACID. [Concomitant]
     Active Substance: FOLIC ACID
     Dosage: 5 MG, 1 VEZ AL DIA
     Route: 048
     Dates: start: 20150408
  6. HIDROFEROL CHOQUE [Concomitant]
     Dosage: 0,266 MG CADA 15 DIAS
     Route: 048
     Dates: start: 20150408
  7. DAKLINZA [Suspect]
     Active Substance: DACLATASVIR
     Indication: CHRONIC HEPATITIS C
     Dosage: 60 MG
     Route: 048
     Dates: start: 20160215
  8. RETINOL PALMITAT                   /00056002/ [Concomitant]
     Dosage: 1 CAPSULA CADA 15 DIAS
     Route: 048
     Dates: start: 20150408
  9. PROPRANOLOL [Concomitant]
     Active Substance: PROPRANOLOL\PROPRANOLOL HYDROCHLORIDE
     Dosage: 80 MG, 2 VECES AL DIA
     Route: 048
     Dates: start: 20150408
  10. PANTOPRAZOL [Concomitant]
     Active Substance: PANTOPRAZOLE SODIUM
     Dosage: 40 MG, 1 VEZ AL DIA
     Route: 048
     Dates: start: 20150408
  11. SOFOSBUVIR [Suspect]
     Active Substance: SOFOSBUVIR
     Indication: CHRONIC HEPATITIS C
     Dosage: 400 MG, QD
     Route: 048
     Dates: start: 20160215
  12. RIBAVIRIN. [Suspect]
     Active Substance: RIBAVIRIN
     Indication: CHRONIC HEPATITIS C
     Dosage: 500 MG, BID
     Route: 048
     Dates: start: 20160215

REACTIONS (2)
  - Vomiting [Recovered/Resolved]
  - Abdominal pain upper [Recovered/Resolved]

NARRATIVE: CASE EVENT DATE: 20160408
